FAERS Safety Report 21891777 (Version 7)
Quarter: 2024Q1

REPORT INFORMATION
  Report Type: Spontaneous
  Country: JP (occurrence: JP)
  Receive Date: 20230120
  Receipt Date: 20240126
  Transmission Date: 20240409
  Serious: Yes (Hospitalization, Other)
  Sender: FDA-Public Use
  Company Number: JP-GLAXOSMITHKLINE-JP2023JPN006521

PATIENT

DRUGS (11)
  1. LAMICTAL [Suspect]
     Active Substance: LAMOTRIGINE
     Indication: Epilepsy
     Dosage: 2 MG, 1D
     Route: 048
     Dates: start: 20180116, end: 20180129
  2. LAMICTAL [Suspect]
     Active Substance: LAMOTRIGINE
     Indication: Partial seizures
     Dosage: 2 MG, BID
     Route: 048
     Dates: start: 20180130, end: 20180917
  3. LAMICTAL [Suspect]
     Active Substance: LAMOTRIGINE
     Dosage: 4 MG, BID
     Route: 048
     Dates: start: 20180918, end: 20181224
  4. LAMICTAL [Suspect]
     Active Substance: LAMOTRIGINE
     Dosage: 8 MG, BID
     Route: 048
     Dates: start: 20181225, end: 20190708
  5. LAMICTAL [Suspect]
     Active Substance: LAMOTRIGINE
     Indication: Epilepsy
     Dosage: 25 MG, BID
     Route: 048
     Dates: start: 20190709, end: 20190930
  6. LAMICTAL [Suspect]
     Active Substance: LAMOTRIGINE
     Indication: Partial seizures
     Dosage: 50 MG, BID
     Route: 048
     Dates: start: 20191001, end: 20220829
  7. LAMICTAL [Suspect]
     Active Substance: LAMOTRIGINE
     Dosage: 25 MG, BID
     Route: 048
     Dates: start: 20220830
  8. LAMICTAL [Suspect]
     Active Substance: LAMOTRIGINE
     Dosage: UNK, DECREASED GRADUALLY AND DISCONTINUED
     Dates: end: 20220906
  9. VIMPAT [Suspect]
     Active Substance: LACOSAMIDE
     Indication: Epilepsy
     Dosage: 150 MG, 50 IN THE MORNING, 100 IN THE EVENING
     Route: 048
     Dates: start: 20220830, end: 20220912
  10. NAPROXEN SODIUM [Suspect]
     Active Substance: NAPROXEN\NAPROXEN SODIUM
     Indication: Arthritis
     Dosage: 200 MG, BID
     Route: 048
     Dates: start: 20220827, end: 20220912
  11. GASTER [Suspect]
     Active Substance: FAMOTIDINE
     Indication: Prophylaxis
     Dosage: 20 MG, 1D
     Route: 048
     Dates: start: 20220827, end: 20220912

REACTIONS (8)
  - Lupus-like syndrome [Recovering/Resolving]
  - Polyarthritis [Recovered/Resolved]
  - Drug reaction with eosinophilia and systemic symptoms [Recovered/Resolved]
  - Arthralgia [Recovered/Resolved]
  - Systemic lupus erythematosus rash [Recovered/Resolved]
  - Pyrexia [Recovered/Resolved]
  - Prescribed underdose [Unknown]
  - Drug titration error [Unknown]

NARRATIVE: CASE EVENT DATE: 20220801
